FAERS Safety Report 7822946-4 (Version None)
Quarter: 2011Q4

REPORT INFORMATION
  Report Type: 
  Country: None (occurrence: None)
  Receive Date: 20111018
  Receipt Date: 20100915
  Transmission Date: 20120403
  Serious: Yes (Other)
  Sender: FDA-Public Use
  Company Number: US-ASTRAZENECA-2010SE41241

PATIENT
  Sex: Female

DRUGS (2)
  1. SYMBICORT [Suspect]
     Indication: ASTHMA
     Dosage: 160/4.5 MCG, TWO PUFFS
     Route: 055
     Dates: start: 20100101
  2. CODEINE SULFATE [Concomitant]

REACTIONS (3)
  - CONVULSION [None]
  - COUGH [None]
  - RHINORRHOEA [None]
